FAERS Safety Report 8995146 (Version 2)
Quarter: 2013Q1

REPORT INFORMATION
  Report Type: Spontaneous
  Country: JP (occurrence: JP)
  Receive Date: 20130102
  Receipt Date: 20130123
  Transmission Date: 20140127
  Serious: Yes (Other)
  Sender: FDA-Public Use
  Company Number: JP-MERCK-1212JPN011227

PATIENT
  Age: 70 Year
  Sex: Female

DRUGS (8)
  1. GLACTIV [Suspect]
     Indication: TYPE 2 DIABETES MELLITUS
     Dosage: 25 MG, QD
     Route: 048
     Dates: start: 20120910, end: 20121129
  2. IMIDAPRIL HYDROCHLORIDE [Concomitant]
  3. SIMVASTATIN [Concomitant]
  4. OXYCONTIN [Concomitant]
     Dosage: UNK
     Dates: start: 20110811
  5. CELECOX [Concomitant]
     Dosage: UNK
     Dates: start: 20110303
  6. SENNARIDE [Concomitant]
     Dosage: UNK
     Dates: start: 20111222
  7. HALAVEN [Concomitant]
     Dosage: UNK
     Dates: start: 20120112, end: 20121108
  8. HERCEPTIN [Concomitant]
     Dosage: UNK
     Dates: start: 20120412, end: 20121108

REACTIONS (1)
  - Liver disorder [Recovering/Resolving]
